FAERS Safety Report 7342881-8 (Version None)
Quarter: 2011Q1

REPORT INFORMATION
  Report Type: 
  Country: None (occurrence: None)
  Receive Date: 20110310
  Receipt Date: 20110228
  Transmission Date: 20110831
  Serious: Yes (Death)
  Sender: FDA-Public Use
  Company Number: CA-NOVOPROD-324238

PATIENT

DRUGS (1)
  1. NIASTASE RT [Suspect]
     Indication: HAEMOSTASIS
     Route: 065

REACTIONS (1)
  - HAEMORRHAGE [None]
